FAERS Safety Report 24994361 (Version 1)
Quarter: 2025Q1

REPORT INFORMATION
  Report Type: Spontaneous
  Country: US (occurrence: None)
  Receive Date: 20250220
  Receipt Date: 20250220
  Transmission Date: 20250408
  Serious: No
  Sender: FDA-CTU
  Company Number: None

PATIENT
  Age: 36 Year
  Sex: Female
  Weight: 65.25 kg

DRUGS (3)
  1. BUPROPION [Suspect]
     Active Substance: BUPROPION
     Route: 048
  2. DOXYCYCLINE [Suspect]
     Active Substance: DOXYCYCLINE
  3. AMPHETAMINE [Concomitant]
     Active Substance: AMPHETAMINE

REACTIONS (7)
  - Nausea [None]
  - Retching [None]
  - Discoloured vomit [None]
  - Fatigue [None]
  - Tremor [None]
  - Dysphagia [None]
  - Discomfort [None]

NARRATIVE: CASE EVENT DATE: 20250219
